FAERS Safety Report 7416978-8 (Version None)
Quarter: 2011Q2

REPORT INFORMATION
  Report Type: 
  Country: None (occurrence: None)
  Receive Date: 20110415
  Receipt Date: 20110406
  Transmission Date: 20111010
  Serious: Yes (Other)
  Sender: FDA-Public Use
  Company Number: BR-AMGEN-BRASP2011019027

PATIENT
  Age: 33 Year
  Sex: Female
  Weight: 69 kg

DRUGS (7)
  1. SERTRALINE [Concomitant]
     Indication: ANTIDEPRESSANT THERAPY
     Dosage: 50MG IN THE MORNING AND 25MG AT NIGHT
     Dates: start: 20090101
  2. METFORMIN [Concomitant]
     Indication: BLOOD GLUCOSE INCREASED
     Dosage: 500 MG, 1X/DAY
  3. SERTRALINE [Concomitant]
     Indication: PANIC DISORDER
  4. CLONAZEPAM [Concomitant]
     Indication: DEPRESSION
     Dosage: 1MG IN THE MRONING AND 2MG AT NIGHT
     Dates: start: 20060101
  5. DORFLEX [Concomitant]
     Indication: MYALGIA
     Dosage: AS NEEDED
     Dates: start: 20100101
  6. ENBREL [Suspect]
     Indication: RHEUMATOID ARTHRITIS
     Dosage: 50 MG, WEEKLY
     Route: 058
     Dates: start: 20110320
  7. PREDNISONE [Concomitant]
     Indication: RHEUMATOID ARTHRITIS
     Dosage: 5 MG, 2X/DAY
     Dates: start: 20040101

REACTIONS (12)
  - EYE IRRITATION [None]
  - ERYTHEMA [None]
  - OROPHARYNGEAL PAIN [None]
  - ALANINE AMINOTRANSFERASE INCREASED [None]
  - PRURITUS [None]
  - ASPARTATE AMINOTRANSFERASE INCREASED [None]
  - HEADACHE [None]
  - PYREXIA [None]
  - PAIN [None]
  - VULVOVAGINAL PRURITUS [None]
  - URTICARIA [None]
  - EYE PAIN [None]
